FAERS Safety Report 10886204 (Version 3)
Quarter: 2015Q1

REPORT INFORMATION
  Report Type: Spontaneous
  Country: NO (occurrence: NO)
  Receive Date: 20150304
  Receipt Date: 20150326
  Transmission Date: 20150721
  Serious: Yes (Hospitalization, Other)
  Sender: FDA-Public Use
  Company Number: NO-ABBVIE-15K-122-1353494-00

PATIENT
  Age: 54 Year
  Sex: Female

DRUGS (1)
  1. HUMIRA [Suspect]
     Active Substance: ADALIMUMAB
     Indication: ARTHRITIS
     Route: 058

REACTIONS (14)
  - Purulent discharge [Recovered/Resolved]
  - Decreased appetite [Unknown]
  - Dermal cyst [Recovered/Resolved]
  - Granuloma [Recovered/Resolved]
  - Dysfunctional uterine bleeding [Recovered/Resolved]
  - Arthritis [Unknown]
  - Weight decreased [Unknown]
  - Dysarthria [Recovered/Resolved]
  - Visual impairment [Unknown]
  - Subcutaneous abscess [Recovered/Resolved]
  - Neoplasm skin [Not Recovered/Not Resolved]
  - Immunodeficiency [Unknown]
  - VIIth nerve paralysis [Recovered/Resolved]
  - Dermatitis [Recovered/Resolved]

NARRATIVE: CASE EVENT DATE: 2014
